FAERS Safety Report 10399856 (Version 3)
Quarter: 2014Q3

REPORT INFORMATION
  Report Type: Spontaneous
  Country: BR (occurrence: BR)
  Receive Date: 20140821
  Receipt Date: 20140922
  Transmission Date: 20150326
  Serious: Yes (Other)
  Sender: FDA-Public Use
  Company Number: BR-GLAXOSMITHKLINE-A1081762A

PATIENT
  Age: 9 Year
  Sex: Female

DRUGS (3)
  1. ZINNAT [Suspect]
     Active Substance: CEFUROXIME AXETIL
     Indication: SINUSITIS
     Dosage: 10ML TWICE PER DAY
     Route: 048
  2. SERETIDE [Suspect]
     Active Substance: FLUTICASONE FUROATE\SALMETEROL XINAFOATE
     Indication: ASTHMA
     Route: 065
  3. BUDESONID [Suspect]
     Active Substance: BUDESONIDE
     Indication: ASTHMA
     Route: 065

REACTIONS (9)
  - Drug administration error [Unknown]
  - Product quality issue [Unknown]
  - Pneumonia [Unknown]
  - Asthma [Unknown]
  - Malaise [Unknown]
  - Off label use [Unknown]
  - Sinusitis [Unknown]
  - Asthmatic crisis [Unknown]
  - Overdose [Unknown]

NARRATIVE: CASE EVENT DATE: 20140718
